FAERS Safety Report 18971041 (Version 2)
Quarter: 2021Q1

REPORT INFORMATION
  Report Type: Spontaneous
  Country: US (occurrence: US)
  Receive Date: 20210304
  Receipt Date: 20210314
  Transmission Date: 20210420
  Serious: Yes (Death, Hospitalization, Other)
  Sender: FDA-Public Use
  Company Number: US-BAXTER-2021BAX004353

PATIENT
  Age: 35 Year
  Sex: Female

DRUGS (2)
  1. CISPLATIN. [Suspect]
     Active Substance: CISPLATIN
     Indication: OSTEOSARCOMA
     Dosage: CYCLICAL
     Route: 065
  2. DOXIL [Suspect]
     Active Substance: DOXORUBICIN HYDROCHLORIDE
     Indication: OSTEOSARCOMA
     Dosage: CYCLICAL
     Route: 065

REACTIONS (3)
  - Neutropenic infection [Unknown]
  - Respiratory symptom [Unknown]
  - Effusion [Fatal]
